FAERS Safety Report 9516838 (Version 1)
Quarter: 2013Q3

REPORT INFORMATION
  Report Type: Spontaneous
  Country: US (occurrence: US)
  Receive Date: 20130911
  Receipt Date: 20130911
  Transmission Date: 20140515
  Serious: No
  Sender: FDA-Public Use
  Company Number: US-BAYER-2013-109766

PATIENT
  Age: 83 Year
  Sex: Female
  Weight: 54.42 kg

DRUGS (1)
  1. ALEVE TABLET [Suspect]
     Indication: ANALGESIC THERAPY
     Dosage: 1 DF, BID
     Route: 048
     Dates: start: 201303, end: 20130905

REACTIONS (2)
  - Constipation [Not Recovered/Not Resolved]
  - Drug ineffective [None]
